FAERS Safety Report 24950049 (Version 1)
Quarter: 2025Q1

REPORT INFORMATION
  Report Type: Spontaneous
  Country: NL (occurrence: NL)
  Receive Date: 20250210
  Receipt Date: 20250210
  Transmission Date: 20250409
  Serious: Yes (Other)
  Sender: Haleon PLC
  Company Number: None

PATIENT
  Age: 62 Year
  Sex: Female
  Weight: 68 kg

DRUGS (1)
  1. ADVIL [Suspect]
     Active Substance: IBUPROFEN
     Indication: Headache
     Dosage: 1XDAG 1 STUK
     Route: 048
     Dates: start: 20240904

REACTIONS (3)
  - Asphyxia [Unknown]
  - Pharyngeal swelling [Unknown]
  - Foreign body in throat [Unknown]
